FAERS Safety Report 16009443 (Version 1)
Quarter: 2019Q1

REPORT INFORMATION
  Report Type: Spontaneous
  Country: AT (occurrence: AT)
  Receive Date: 20190225
  Receipt Date: 20190225
  Transmission Date: 20190418
  Serious: Yes (Other)
  Sender: FDA-Public Use
  Company Number: PHHY2019AT040507

PATIENT
  Sex: Male

DRUGS (3)
  1. SEVIKAR HCT [Concomitant]
     Active Substance: AMLODIPINE BESYLATE\HYDROCHLOROTHIAZIDE\OLMESARTAN MEDOXOMIL
     Indication: BLOOD PRESSURE MEASUREMENT
     Dosage: 20MG/5MG/12.5MG FOR FOUR YEARS
     Route: 065
  2. EXFORGE HCT [Suspect]
     Active Substance: AMLODIPINE BESYLATE\HYDROCHLOROTHIAZIDE\VALSARTAN
     Indication: BLOOD PRESSURE ABNORMAL
     Dosage: VAL 160 MG/ AMLO 5 MG/ HYDRO 12.5 MG
     Route: 065
     Dates: start: 20190209, end: 20190213
  3. EXFORGE HCT [Suspect]
     Active Substance: AMLODIPINE BESYLATE\HYDROCHLOROTHIAZIDE\VALSARTAN
     Dosage: VAL 160 MG/ AMLO 10 MG/ HYDRO 12.5 MG
     Route: 065
     Dates: start: 20190213

REACTIONS (4)
  - Vision blurred [Unknown]
  - Visual impairment [Unknown]
  - Head discomfort [Unknown]
  - Blood pressure increased [Unknown]

NARRATIVE: CASE EVENT DATE: 20190212
